FAERS Safety Report 5976278-X (Version None)
Quarter: 2008Q4

REPORT INFORMATION
  Report Type: 
  Country: None (occurrence: None)
  Receive Date: 20081202
  Receipt Date: 20081121
  Transmission Date: 20090506
  Serious: Yes (Other)
  Sender: FDA-Public Use
  Company Number: FR-BAXTER-2008BH012988

PATIENT

DRUGS (3)
  1. CYCLOPHOSPHAMIDE [Suspect]
     Indication: METASTASES TO MENINGES
     Route: 042
  2. ETOPOSIDE [Suspect]
     Indication: METASTASES TO MENINGES
     Route: 042
  3. CELECOXIB [Suspect]
     Indication: METASTASES TO MENINGES
     Route: 042

REACTIONS (1)
  - SUBDURAL HAEMATOMA [None]
